FAERS Safety Report 9840358 (Version 4)
Quarter: 2014Q1

REPORT INFORMATION
  Report Type: Report from Study
  Country: US (occurrence: US)
  Receive Date: 20140124
  Receipt Date: 20140303
  Transmission Date: 20141002
  Serious: Yes (Hospitalization)
  Sender: FDA-Public Use
  Company Number: US-JNJFOC-20140111513

PATIENT
  Age: 10 Year
  Sex: Male
  Weight: 28 kg

DRUGS (6)
  1. REMICADE [Suspect]
     Indication: INFLAMMATORY BOWEL DISEASE
     Route: 042
     Dates: start: 20130524
  2. REMICADE [Suspect]
     Indication: INFLAMMATORY BOWEL DISEASE
     Route: 042
     Dates: start: 20110122
  3. HUMIRA [Concomitant]
     Route: 065
     Dates: start: 20110210
  4. HUMIRA [Concomitant]
     Route: 065
     Dates: start: 20130304, end: 20130513
  5. HUMIRA [Concomitant]
     Route: 065
     Dates: start: 20130302
  6. AZATHIOPRINE [Concomitant]
     Route: 065

REACTIONS (1)
  - Crohn^s disease [Recovered/Resolved]
